FAERS Safety Report 8979161 (Version 1)
Quarter: 2012Q4

REPORT INFORMATION
  Report Type: 
  Country: AT (occurrence: AT)
  Receive Date: 20121221
  Receipt Date: 20121221
  Transmission Date: 20130627
  Serious: Yes (Other)
  Sender: FDA-Public Use
  Company Number: AT-PFIZER INC-2012320760

PATIENT
  Sex: Female

DRUGS (2)
  1. EFECTIN ER [Suspect]
     Dosage: 150 mg daily
  2. EFECTIN ER [Suspect]
     Dosage: 450 mg daily

REACTIONS (1)
  - Gastric disorder [Unknown]
